FAERS Safety Report 5409122-X (Version None)
Quarter: 2007Q3

REPORT INFORMATION
  Report Type: 
  Country: None (occurrence: None)
  Receive Date: 20070713
  Receipt Date: 20070516
  Transmission Date: 20080115
  Serious: Yes (Other)
  Sender: FDA-Public Use
  Company Number: US-JNJFOC-20061204603

PATIENT
  Age: 28 Year
  Sex: Female
  Weight: 83.5979 kg

DRUGS (3)
  1. ORTHO EVRA [Suspect]
     Indication: CONTRACEPTION
     Dosage: TRANSDERMAL
     Route: 062
     Dates: start: 20050201, end: 20050307
  2. MULTIVITAMIN [Concomitant]
  3. TUMS              (CALCIUM CARBONATE) [Concomitant]

REACTIONS (1)
  - DEEP VEIN THROMBOSIS [None]
